FAERS Safety Report 4555979-4 (Version None)
Quarter: 2005Q1

REPORT INFORMATION
  Report Type: 
  Country: None (occurrence: None)
  Receive Date: 20050110
  Receipt Date: 20040616
  Transmission Date: 20050727
  Serious: Yes (Hospitalization)
  Sender: FDA-Public Use
  Company Number: KDL018968

PATIENT
  Age: 70 Year
  Sex: Female

DRUGS (13)
  1. ANAKINRA [Suspect]
     Indication: RHEUMATOID ARTHRITIS
     Dosage: 100 MG, DAILY, SC
     Route: 058
     Dates: start: 20010531
  2. LEVOTHRYROXINE SODIUM [Concomitant]
  3. PAROXETINE HYDROCHLORIDE [Concomitant]
  4. THEOPHYLLINE [Concomitant]
  5. FLUTICASONE PROPIONATE [Concomitant]
  6. AMIODARONE HCL [Concomitant]
  7. BUDESONIDE [Concomitant]
  8. ALBUTEROL SULFATE [Concomitant]
  9. POTASSIUM CHLORIDE [Concomitant]
  10. FEXOFENADINE HYDROCHLORIDE [Concomitant]
  11. CELECOXIB [Concomitant]
  12. IBUPROFEN [Concomitant]
  13. IBUPROFEN [Concomitant]

REACTIONS (1)
  - PNEUMONIA [None]
